FAERS Safety Report 7553770-8 (Version None)
Quarter: 2011Q2

REPORT INFORMATION
  Report Type: 
  Country: None (occurrence: None)
  Receive Date: 20110614
  Receipt Date: 20110614
  Transmission Date: 20111010
  Serious: Yes (Other)
  Sender: FDA-Public Use
  Company Number: None

PATIENT
  Age: 76 Year
  Sex: Male
  Weight: 104.3273 kg

DRUGS (1)
  1. CIPROFLOXACIN [Suspect]
     Indication: DEVICE RELATED INFECTION
     Dosage: 1 TAB TWICE DAILY PO
     Route: 048
     Dates: start: 20110611, end: 20110612

REACTIONS (6)
  - SOMNOLENCE [None]
  - TIC [None]
  - HALLUCINATION [None]
  - COGNITIVE DISORDER [None]
  - CONFUSIONAL STATE [None]
  - BALANCE DISORDER [None]
